FAERS Safety Report 18435068 (Version 2)
Quarter: 2021Q2

REPORT INFORMATION
  Report Type: Spontaneous
  Country: US (occurrence: US)
  Receive Date: 20201027
  Receipt Date: 20210506
  Transmission Date: 20210717
  Serious: No
  Sender: FDA-Public Use
  Company Number: US-BRISTOL-MYERS SQUIBB COMPANY-BMS-2020-088600

PATIENT
  Age: 77 Year
  Sex: Female
  Weight: 51.2 kg

DRUGS (7)
  1. HYDREA [Suspect]
     Active Substance: HYDROXYUREA
     Dosage: 1500 MILLIGRAM ONCE A DAY ON SATURDAYS, SUNDAYS, TUESDAYS AND THURSDAYS
     Route: 065
  2. COLACE [Suspect]
     Active Substance: DOCUSATE SODIUM
     Indication: GASTROINTESTINAL PAIN
     Dosage: UNK
     Route: 065
  3. PRILOSEC [Concomitant]
     Active Substance: OMEPRAZOLE MAGNESIUM
     Indication: ASTHMA
     Dosage: 40 MILLIGRAM, QD
     Route: 065
  4. HYDREA [Suspect]
     Active Substance: HYDROXYUREA
     Indication: ESSENTIAL THROMBOCYTHAEMIA
     Dosage: 500 MILLIGRAM
     Route: 065
  5. HYDREA [Suspect]
     Active Substance: HYDROXYUREA
     Dosage: 1000 MG ON MONDAYS, WEDNESDAYS AND FRIDAYS
     Route: 065
  6. MONTELUKAST [MONTELUKAST SODIUM] [Concomitant]
     Active Substance: MONTELUKAST SODIUM
     Indication: ASTHMA
     Dosage: 10 MILLIGRAM, QD
     Route: 065
  7. GUAIFENESIN. [Concomitant]
     Active Substance: GUAIFENESIN
     Indication: ASTHMA
     Dosage: 1200 MILLIGRAM
     Route: 065

REACTIONS (7)
  - Diarrhoea [Unknown]
  - Asthma [Unknown]
  - Constipation [Not Recovered/Not Resolved]
  - Intentional product use issue [Unknown]
  - Weight decreased [Unknown]
  - Gastrointestinal pain [Unknown]
  - Heart rate increased [Unknown]

NARRATIVE: CASE EVENT DATE: 20190528
